FAERS Safety Report 7768694-0 (Version None)
Quarter: 2011Q3

REPORT INFORMATION
  Report Type: 
  Country: None (occurrence: None)
  Receive Date: 20110922
  Receipt Date: 20100412
  Transmission Date: 20111222
  Serious: Yes (Other)
  Sender: FDA-Public Use
  Company Number: US-ASTRAZENECA-2009SE19313

PATIENT
  Sex: Male

DRUGS (3)
  1. PROZAC [Concomitant]
     Dates: start: 20080208
  2. DEPAKOTE [Concomitant]
     Dates: start: 20080208
  3. SEROQUEL [Suspect]
     Route: 048
     Dates: start: 20080208

REACTIONS (2)
  - DIABETES MELLITUS [None]
  - PANCREATITIS [None]
